FAERS Safety Report 15280710 (Version 1)
Quarter: 2018Q3

REPORT INFORMATION
  Report Type: Spontaneous
  Country: BR (occurrence: BR)
  Receive Date: 20180815
  Receipt Date: 20180815
  Transmission Date: 20181010
  Serious: Yes (Death, Hospitalization)
  Sender: FDA-Public Use
  Company Number: PHHY2018BR066981

PATIENT
  Sex: Male

DRUGS (9)
  1. METHYLDOPA. [Suspect]
     Active Substance: METHYLDOPA
     Indication: FOETAL EXPOSURE DURING PREGNANCY
     Route: 064
  2. FUROSEMIDE. [Suspect]
     Active Substance: FUROSEMIDE
     Indication: FOETAL EXPOSURE DURING PREGNANCY
     Route: 064
  3. TAMIFLU [Suspect]
     Active Substance: OSELTAMIVIR PHOSPHATE
     Indication: FOETAL EXPOSURE DURING PREGNANCY
     Route: 064
  4. MEROPENEM. [Suspect]
     Active Substance: MEROPENEM
     Indication: FOETAL EXPOSURE DURING PREGNANCY
     Route: 064
  5. PROPOFOL. [Suspect]
     Active Substance: PROPOFOL
     Indication: FOETAL EXPOSURE DURING PREGNANCY
     Route: 064
  6. TEICOPLANIN [Suspect]
     Active Substance: TEICOPLANIN
     Indication: FOETAL EXPOSURE DURING PREGNANCY
     Route: 064
  7. CALCIUM [Suspect]
     Active Substance: CALCIUM
     Indication: FOETAL EXPOSURE DURING PREGNANCY
     Route: 064
  8. SODIUM BICARBONATE. [Suspect]
     Active Substance: SODIUM BICARBONATE
     Indication: FOETAL EXPOSURE DURING PREGNANCY
     Route: 064
  9. INSULIN [Suspect]
     Active Substance: INSULIN NOS
     Indication: FOETAL EXPOSURE DURING PREGNANCY
     Route: 064

REACTIONS (6)
  - Seizure [Fatal]
  - Haemorrhagic disorder [Fatal]
  - Premature baby [Unknown]
  - Neutrophilia [Fatal]
  - Thrombocytopenia [Fatal]
  - Foetal exposure during pregnancy [Unknown]
